FAERS Safety Report 8014228-5 (Version None)
Quarter: 2011Q4

REPORT INFORMATION
  Report Type: 
  Country: None (occurrence: None)
  Receive Date: 20111229
  Receipt Date: 20111222
  Transmission Date: 20120403
  Serious: Yes (Other)
  Sender: FDA-Public Use
  Company Number: US-GLAXOSMITHKLINE-A0956481A

PATIENT
  Age: 41 Year
  Sex: Male

DRUGS (3)
  1. LAMICTAL [Suspect]
     Indication: BIPOLAR DISORDER
     Dosage: 100MG PER DAY
     Route: 048
     Dates: start: 20110915, end: 20111120
  2. ABILIFY [Concomitant]
  3. LEXAPRO [Concomitant]

REACTIONS (6)
  - HYPOTENSION [None]
  - INCORRECT DOSE ADMINISTERED [None]
  - SKIN EXFOLIATION [None]
  - RASH [None]
  - STEVENS-JOHNSON SYNDROME [None]
  - SYNCOPE [None]
